FAERS Safety Report 6945162-7 (Version None)
Quarter: 2010Q3

REPORT INFORMATION
  Report Type: 
  Country: None (occurrence: None)
  Receive Date: 20100827
  Receipt Date: 20100817
  Transmission Date: 20110219
  Serious: Yes (Hospitalization)
  Sender: FDA-Public Use
  Company Number: FR-SANOFI-AVENTIS-2010SA048617

PATIENT
  Age: 71 Year
  Sex: Male

DRUGS (12)
  1. KARDEGIC [Suspect]
     Route: 048
     Dates: start: 20100723
  2. PLAVIX [Suspect]
     Route: 048
     Dates: start: 20100727, end: 20100808
  3. HEPARINE CHOAY [Suspect]
     Route: 042
     Dates: start: 20100723, end: 20100808
  4. BISOPROLOL FUMARATE [Concomitant]
  5. ESOMEPRAZOLE MAGNESIUM [Concomitant]
  6. LASIX [Concomitant]
  7. NEURONTIN [Concomitant]
  8. SIMVASTATIN [Concomitant]
  9. COVERSYL /FRA/ [Concomitant]
  10. SPECIAFOLDINE [Concomitant]
  11. TARDYFERON /GFR/ [Concomitant]
  12. DIAMICRON [Concomitant]

REACTIONS (2)
  - HAEMATOMA [None]
  - PHYSICAL DISABILITY [None]
